FAERS Safety Report 10399128 (Version 1)
Quarter: 2014Q3

REPORT INFORMATION
  Report Type: Spontaneous
  Country: US (occurrence: None)
  Receive Date: 20140818
  Receipt Date: 20140818
  Transmission Date: 20150326
  Serious: Yes (Hospitalization)
  Sender: FDA-Public Use
  Company Number: None

PATIENT
  Age: 37 Year
  Sex: Male
  Weight: 234 kg

DRUGS (2)
  1. SUBSYS [Suspect]
     Active Substance: FENTANYL
     Indication: BRAIN INJURY
     Dosage: 3200 MCG EVERY 4 HOURS TAKEN UNDER THE TONGUE
  2. SUBSYS [Suspect]
     Active Substance: FENTANYL
     Indication: PAIN
     Dosage: 3200 MCG EVERY 4 HOURS TAKEN UNDER THE TONGUE

REACTIONS (3)
  - Malaise [None]
  - Drug dose omission [None]
  - Product packaging quantity issue [None]

NARRATIVE: CASE EVENT DATE: 20130801
